FAERS Safety Report 24200873 (Version 3)
Quarter: 2024Q3

REPORT INFORMATION
  Report Type: Report from Study
  Country: US (occurrence: US)
  Receive Date: 20240812
  Receipt Date: 20240829
  Transmission Date: 20241017
  Serious: No
  Sender: MYLAN
  Company Number: US-MYLANLABS-2024M1073774

PATIENT
  Age: 34 Year
  Sex: Female

DRUGS (2)
  1. ISOTRETINOIN [Suspect]
     Active Substance: ISOTRETINOIN
     Indication: Product used for unknown indication
     Dosage: UNK
     Route: 065
     Dates: start: 20240101, end: 20240730
  2. ISOTRETINOIN [Suspect]
     Active Substance: ISOTRETINOIN
     Dosage: 30 MILLIGRAM
     Route: 065
     Dates: start: 20240129, end: 20240730

REACTIONS (1)
  - Pregnancy test false positive [Unknown]

NARRATIVE: CASE EVENT DATE: 20240802
